FAERS Safety Report 24237950 (Version 1)
Quarter: 2024Q3

REPORT INFORMATION
  Report Type: Spontaneous
  Country: CA (occurrence: CA)
  Receive Date: 20240822
  Receipt Date: 20240822
  Transmission Date: 20241017
  Serious: Yes (Hospitalization, Other)
  Sender: INCYTE
  Company Number: CA-INCYTE CORPORATION-2024IN006319

PATIENT

DRUGS (2)
  1. PEMAZYRE [Suspect]
     Active Substance: PEMIGATINIB
     Indication: Eccrine carcinoma
     Dosage: 13.5 MILLIGRAM, QD (14 DAYS ON AND 7 DAYS OFF (3 TABLETS X 4.5 MG))
     Route: 048
     Dates: start: 20240624, end: 20240807
  2. PEMAZYRE [Suspect]
     Active Substance: PEMIGATINIB
     Dosage: 13.5 MILLIGRAM, QD (14 DAYS ON AND 7 DAYS OFF (3 TABLETS X 4.5 MG))
     Route: 048
     Dates: start: 20240624, end: 20240807

REACTIONS (9)
  - Eccrine carcinoma [Not Recovered/Not Resolved]
  - Disease progression [Not Recovered/Not Resolved]
  - Acute kidney injury [Recovering/Resolving]
  - Rash [Not Recovered/Not Resolved]
  - Drug ineffective for unapproved indication [Unknown]
  - Off label use [Unknown]
  - Back pain [Unknown]
  - Alopecia [Unknown]
  - Constipation [Unknown]

NARRATIVE: CASE EVENT DATE: 20240601
